FAERS Safety Report 20082834 (Version 9)
Quarter: 2022Q3

REPORT INFORMATION
  Report Type: Report from Study
  Country: CA (occurrence: CA)
  Receive Date: 20211117
  Receipt Date: 20220921
  Transmission Date: 20221027
  Serious: Yes (Hospitalization, Other)
  Sender: FDA-Public Use
  Company Number: CA-TAKEDA-2021TUS072369

PATIENT
  Age: 33 Year
  Sex: Female

DRUGS (4)
  1. VEDOLIZUMAB [Suspect]
     Active Substance: VEDOLIZUMAB
     Indication: Crohn^s disease
     Dosage: 300 MILLIGRAM
     Route: 042
     Dates: start: 20211008
  2. VEDOLIZUMAB [Suspect]
     Active Substance: VEDOLIZUMAB
     Dosage: 300 MILLIGRAM, Q4WEEKS
     Route: 042
     Dates: start: 20211203, end: 20220831
  3. REMICADE [Concomitant]
     Active Substance: INFLIXIMAB
     Dosage: UNK
     Dates: start: 2019
  4. Salofalk [Concomitant]
     Dosage: UNK
     Dates: start: 2019

REACTIONS (4)
  - Crohn^s disease [Unknown]
  - Rectal abscess [Unknown]
  - Anal fistula [Unknown]
  - Off label use [Unknown]

NARRATIVE: CASE EVENT DATE: 20211203
